FAERS Safety Report 6176105-4 (Version None)
Quarter: 2009Q2

REPORT INFORMATION
  Report Type: 
  Country: None (occurrence: None)
  Receive Date: 20090501
  Receipt Date: 20090420
  Transmission Date: 20091009
  Serious: Yes (Other)
  Sender: FDA-Public Use
  Company Number: ZA-PFIZER INC-2009201606

PATIENT

DRUGS (1)
  1. PHENYTOIN SODIUM CAP [Suspect]
     Dosage: 100 MG, UNK
     Route: 048

REACTIONS (1)
  - CONVULSION [None]
